FAERS Safety Report 21034741 (Version 2)
Quarter: 2022Q3

REPORT INFORMATION
  Report Type: Report from Study
  Country: ES (occurrence: None)
  Receive Date: 20220701
  Receipt Date: 20220708
  Transmission Date: 20221027
  Serious: Yes (Hospitalization)
  Sender: FDA-Public Use
  Company Number: ES-ROCHE-3125248

PATIENT
  Age: 55 Year
  Sex: Female
  Weight: 68 kg

DRUGS (19)
  1. ATEZOLIZUMAB [Suspect]
     Active Substance: ATEZOLIZUMAB
     Indication: Breast cancer
     Dosage: DAY 1-15
     Route: 041
     Dates: start: 20220119, end: 20220331
  2. BEVACIZUMAB [Suspect]
     Active Substance: BEVACIZUMAB
     Indication: Breast cancer
     Dosage: DAY 1-15
     Route: 042
     Dates: start: 20220119, end: 20220331
  3. PACLITAXEL [Suspect]
     Active Substance: PACLITAXEL
     Indication: Breast cancer
     Dosage: DAY 1-8-15
     Route: 042
     Dates: start: 20220119, end: 20220331
  4. ENALAPRIL [Concomitant]
     Active Substance: ENALAPRIL
     Indication: Hypertension
     Dosage: 5/24 H
     Dates: start: 20220421
  5. METAMIZOLE [Concomitant]
     Active Substance: METAMIZOLE
     Indication: Chest pain
     Dosage: 575/8H
     Dates: start: 20220421
  6. METAMIZOLE [Concomitant]
     Active Substance: METAMIZOLE
     Route: 048
     Dates: start: 20220601, end: 20220607
  7. MORPHINE SULFATE [Concomitant]
     Active Substance: MORPHINE SULFATE
     Indication: Chest pain
     Dosage: 5/12 H
     Dates: start: 20220421
  8. MORPHINE SULFATE [Concomitant]
     Active Substance: MORPHINE SULFATE
     Route: 048
     Dates: start: 20220601, end: 20220609
  9. MORPHINE SULFATE [Concomitant]
     Active Substance: MORPHINE SULFATE
     Dosage: 12 HR
     Route: 048
     Dates: start: 20220620
  10. OMEPRAZOLE [Concomitant]
     Active Substance: OMEPRAZOLE
     Indication: Prophylaxis
     Dosage: 20/24 H
     Dates: start: 20211202
  11. OMEPRAZOLE [Concomitant]
     Active Substance: OMEPRAZOLE
     Route: 048
     Dates: start: 20220601, end: 20220609
  12. OMEPRAZOLE [Concomitant]
     Active Substance: OMEPRAZOLE
     Dosage: 20/24 H
     Route: 048
     Dates: start: 20220620
  13. METOCLOPRAMIDE [Concomitant]
     Active Substance: METOCLOPRAMIDE
     Indication: Nausea
     Dosage: 10/8 H
     Dates: start: 20220331
  14. METOCLOPRAMIDE [Concomitant]
     Active Substance: METOCLOPRAMIDE
     Route: 048
     Dates: start: 20220601, end: 20220609
  15. ONDANSETRON [Concomitant]
     Active Substance: ONDANSETRON
     Indication: Nausea
     Dates: start: 20220604, end: 20220607
  16. ONDANSETRON [Concomitant]
     Active Substance: ONDANSETRON
     Dosage: 8/8H
     Dates: start: 20220608, end: 20220609
  17. ONDANSETRON [Concomitant]
     Active Substance: ONDANSETRON
     Dosage: 8/8H
     Dates: start: 20220620, end: 20220628
  18. ACETAMINOPHEN [Concomitant]
     Active Substance: ACETAMINOPHEN
     Indication: Chest pain
     Dosage: 1/8H
     Route: 048
     Dates: start: 20220605, end: 20220609
  19. CEFTAZIDIME [Concomitant]
     Active Substance: CEFTAZIDIME
     Indication: Urinary tract infection
     Dosage: 1/24H
     Route: 042
     Dates: start: 20220620, end: 20220627

REACTIONS (1)
  - Tubulointerstitial nephritis [Recovered/Resolved with Sequelae]

NARRATIVE: CASE EVENT DATE: 20220520
